FAERS Safety Report 9119862 (Version 1)
Quarter: 2013Q1

REPORT INFORMATION
  Report Type: Spontaneous
  Country: BR (occurrence: BR)
  Receive Date: 20130226
  Receipt Date: 20130226
  Transmission Date: 20140127
  Serious: Yes (Disabling, Other)
  Sender: FDA-Public Use
  Company Number: BR-ASTRAZENECA-2013SE11396

PATIENT
  Sex: Female

DRUGS (3)
  1. SEROQUEL [Suspect]
     Indication: BIPOLAR I DISORDER
     Route: 048
  2. LEXAPRO [Suspect]
     Route: 065
  3. UNSPECIFIED INGREDIENT [Suspect]
     Route: 065

REACTIONS (2)
  - Pulmonary embolism [Unknown]
  - Foot fracture [Unknown]
